FAERS Safety Report 13455215 (Version 2)
Quarter: 2017Q2

REPORT INFORMATION
  Report Type: Spontaneous
  Country: BR (occurrence: BR)
  Receive Date: 20170418
  Receipt Date: 20170523
  Transmission Date: 20170830
  Serious: Yes (Disabling, Other)
  Sender: FDA-Public Use
  Company Number: BR-009507513-1704BRA006976

PATIENT
  Age: 77 Year
  Sex: Female
  Weight: 76 kg

DRUGS (9)
  1. JANUVIA [Suspect]
     Active Substance: SITAGLIPTIN PHOSPHATE
     Indication: DIABETES MELLITUS
     Dosage: 100 MG (1 TABLET AFTER DINNER), QPM
     Route: 048
     Dates: start: 2014, end: 2016
  2. JANUVIA [Suspect]
     Active Substance: SITAGLIPTIN PHOSPHATE
     Indication: DIABETES MELLITUS
     Dosage: 50 MG (1 TABLET ONE TABLET AT MORNING AND ANOTHER AFTER DINNER), BID
     Route: 048
     Dates: start: 2012, end: 2014
  3. ETNA [Concomitant]
     Active Substance: UNSPECIFIED INGREDIENT
     Indication: ARTHRITIS
     Dosage: UNK
     Dates: start: 201701
  4. CLENIL-A [Concomitant]
     Active Substance: BECLOMETHASONE DIPROPIONATE
     Indication: BRONCHITIS
  5. SERETIDE [Concomitant]
     Active Substance: FLUTICASONE PROPIONATE\SALMETEROL XINAFOATE
     Indication: BRONCHIECTASIS
  6. CLENIL-A [Concomitant]
     Active Substance: BECLOMETHASONE DIPROPIONATE
     Indication: BRONCHIECTASIS
  7. JANUVIA [Suspect]
     Active Substance: SITAGLIPTIN PHOSPHATE
     Dosage: 100 MG (1 TABLET IN THE MORNING AND AFTER DINNER), BID
     Route: 048
     Dates: start: 2016
  8. ETNA [Concomitant]
     Active Substance: UNSPECIFIED INGREDIENT
     Indication: OSTEOARTHRITIS
  9. SERETIDE [Concomitant]
     Active Substance: FLUTICASONE PROPIONATE\SALMETEROL XINAFOATE
     Indication: BRONCHITIS

REACTIONS (7)
  - Diabetes mellitus inadequate control [Not Recovered/Not Resolved]
  - Tremor [Not Recovered/Not Resolved]
  - Pain in extremity [Not Recovered/Not Resolved]
  - Asthenia [Not Recovered/Not Resolved]
  - Product use issue [Unknown]
  - Gastrooesophageal reflux disease [Not Recovered/Not Resolved]
  - Asthenia [Recovered/Resolved]

NARRATIVE: CASE EVENT DATE: 2014
